APPROVED DRUG PRODUCT: PYOPEN
Active Ingredient: CARBENICILLIN DISODIUM
Strength: EQ 5GM BASE/VIAL
Dosage Form/Route: INJECTABLE;INJECTION
Application: N050298 | Product #003
Applicant: GLAXOSMITHKLINE
Approved: Approved Prior to Jan 1, 1982 | RLD: No | RS: No | Type: DISCN